FAERS Safety Report 6457748-7 (Version None)
Quarter: 2009Q4

REPORT INFORMATION
  Report Type: 
  Country: None (occurrence: None)
  Receive Date: 20091125
  Receipt Date: 20091116
  Transmission Date: 20100525
  Serious: Yes (Hospitalization)
  Sender: FDA-Public Use
  Company Number: US-SANOFI-AVENTIS-200916865US

PATIENT
  Sex: Female

DRUGS (3)
  1. INSULIN GLARGINE [Suspect]
     Dosage: DOSE:35 UNIT(S)
     Route: 058
     Dates: start: 20050101
  2. INSULIN GLARGINE [Suspect]
     Dosage: DOSE:35 UNIT(S)
     Route: 058
     Dates: start: 20070101
  3. OPTICLICK [Suspect]

REACTIONS (3)
  - ASTHENIA [None]
  - BLOOD GLUCOSE INCREASED [None]
  - CARDIAC FAILURE CONGESTIVE [None]
